FAERS Safety Report 17037580 (Version 1)
Quarter: 2019Q4

REPORT INFORMATION
  Report Type: Spontaneous
  Country: US (occurrence: US)
  Receive Date: 20191016
  Receipt Date: 20191016
  Transmission Date: 20200122
  Serious: No
  Sender: FDA-Public Use
  Company Number: None

PATIENT
  Sex: Male

DRUGS (1)
  1. ERLEADA [Suspect]
     Active Substance: APALUTAMIDE
     Indication: PROSTATIC DISORDER
     Dosage: ?          OTHER FREQUENCY:4 ONCE DAILY ;?
     Route: 048
     Dates: start: 20190813

REACTIONS (1)
  - Pruritus [None]
